FAERS Safety Report 12423481 (Version 1)
Quarter: 2016Q2

REPORT INFORMATION
  Report Type: Spontaneous
  Country: US (occurrence: None)
  Receive Date: 20160531
  Receipt Date: 20160531
  Transmission Date: 20160815
  Serious: No
  Sender: FDA-Public Use
  Company Number: None

PATIENT
  Age: 46 Year
  Sex: Female
  Weight: 97.52 kg

DRUGS (1)
  1. HUMIRA [Suspect]
     Active Substance: ADALIMUMAB
     Dosage: 2XMONTH

REACTIONS (3)
  - Ageusia [None]
  - Memory impairment [None]
  - Anosmia [None]

NARRATIVE: CASE EVENT DATE: 20160523
